FAERS Safety Report 7054963-9 (Version None)
Quarter: 2010Q4

REPORT INFORMATION
  Report Type: 
  Country: None (occurrence: None)
  Receive Date: 20101021
  Receipt Date: 20101012
  Transmission Date: 20110411
  Serious: Yes (Death, Other)
  Sender: FDA-Public Use
  Company Number: DE-ELI_LILLY_AND_COMPANY-DE201010003347

PATIENT
  Age: 54 Year
  Sex: Male

DRUGS (2)
  1. GEMZAR [Suspect]
     Indication: NON-SMALL CELL LUNG CANCER
     Dosage: 400 MG/M2, WEEKLY (1/W)
     Route: 042
  2. CISPLATIN [Concomitant]
     Indication: NON-SMALL CELL LUNG CANCER
     Dosage: 20 MG/M2, WEEKLY (1/W)
     Route: 042

REACTIONS (5)
  - DYSPHAGIA [None]
  - LEUKOPENIA [None]
  - NAUSEA [None]
  - OESOPHAGEAL HAEMORRHAGE [None]
  - PULMONARY FIBROSIS [None]
